FAERS Safety Report 21951205 (Version 1)
Quarter: 2023Q1

REPORT INFORMATION
  Report Type: Spontaneous
  Country: US (occurrence: US)
  Receive Date: 20230203
  Receipt Date: 20230203
  Transmission Date: 20230418
  Serious: No
  Sender: FDA-Public Use
  Company Number: US-SA-SAC20230130000413

PATIENT
  Age: 23 Year
  Sex: Female
  Weight: 109.7 kg

DRUGS (1)
  1. DUPIXENT [Suspect]
     Active Substance: DUPILUMAB
     Indication: Dermatitis atopic
     Dosage: 600 MG, 1X
     Route: 058
     Dates: start: 20221021

REACTIONS (5)
  - Urinary tract infection [Unknown]
  - Skin burning sensation [Unknown]
  - Skin erosion [Unknown]
  - Drug hypersensitivity [Recovered/Resolved]
  - Injection site swelling [Unknown]

NARRATIVE: CASE EVENT DATE: 20221001
